FAERS Safety Report 5707438-0 (Version None)
Quarter: 2008Q2

REPORT INFORMATION
  Report Type: 
  Country: None (occurrence: None)
  Receive Date: 20080416
  Receipt Date: 20080408
  Transmission Date: 20081010
  Serious: No
  Sender: FDA-Public Use
  Company Number: US-BOEHRINGER INGELHEIM GMBH, GERMANY-2008-BP-03770BP

PATIENT
  Sex: Female

DRUGS (5)
  1. CATAPRES-TTS-1 [Suspect]
     Route: 061
     Dates: start: 20071112, end: 20080326
  2. PLAVIX [Concomitant]
     Dates: start: 20070613
  3. RANITIDINE [Concomitant]
     Dates: start: 20071004
  4. LEXAPRO [Concomitant]
     Dates: start: 20070613
  5. ALPRAZOLAM [Concomitant]
     Dates: start: 20070613

REACTIONS (2)
  - APPLICATION SITE URTICARIA [None]
  - SKIN REACTION [None]
